FAERS Safety Report 13357729 (Version 1)
Quarter: 2017Q1

REPORT INFORMATION
  Report Type: Spontaneous
  Country: US (occurrence: US)
  Receive Date: 20170322
  Receipt Date: 20170322
  Transmission Date: 20170429
  Serious: No
  Sender: FDA-Public Use
  Company Number: US-ZYDUS-010191

PATIENT
  Sex: Female

DRUGS (1)
  1. ATENOLOL. [Suspect]
     Active Substance: ATENOLOL

REACTIONS (7)
  - Headache [Unknown]
  - Nausea [Unknown]
  - Heart rate irregular [Unknown]
  - Dizziness [Unknown]
  - Cold sweat [Unknown]
  - Palpitations [Unknown]
  - Heart rate decreased [Unknown]
